FAERS Safety Report 8762788 (Version 1)
Quarter: 2012Q4

REPORT INFORMATION
  Report Type: 
  Country: US (occurrence: US)
  Receive Date: 20120829
  Receipt Date: 20120829
  Transmission Date: 20130627
  Serious: No
  Sender: FDA-Public Use
  Company Number: US-PFIZER INC-2012208110

PATIENT
  Age: 5 Day
  Sex: Male
  Weight: 31.4 kg

DRUGS (2)
  1. GENOTROPIN [Suspect]
     Indication: GROWTH HORMONE DEFICIENCY
     Dosage: UNK
     Route: 030
     Dates: start: 20031029
  2. HYDROCORTISONE [Concomitant]
     Dosage: UNK

REACTIONS (4)
  - Pyrexia [Recovering/Resolving]
  - Headache [Recovering/Resolving]
  - Pain [Recovering/Resolving]
  - Incorrect route of drug administration [Unknown]
